FAERS Safety Report 9724668 (Version 4)
Quarter: 2014Q2

REPORT INFORMATION
  Report Type: Spontaneous
  Country: JP (occurrence: JP)
  Receive Date: 20131202
  Receipt Date: 20140613
  Transmission Date: 20141212
  Serious: Yes (Hospitalization, Disabling, Other)
  Sender: FDA-Public Use
  Company Number: JP-TAKEDA-2013TJP003286

PATIENT
  Age: 73 Year
  Sex: Female
  Weight: 51.5 kg

DRUGS (6)
  1. NESINA TABLETS 25MG [Suspect]
     Indication: DIABETES MELLITUS
     Dosage: 25 MG, QD
     Route: 048
     Dates: start: 20131017, end: 20131111
  2. BLOPRESS TABLETS 8 [Concomitant]
     Dosage: 8 MG, QD
     Route: 048
  3. 25MG.ALINAMIN-F SUGAR-COATED TABLETS [Concomitant]
     Dosage: 25 MG, BID
     Route: 048
  4. BENIDIPINE HYDROCHLORIDE [Concomitant]
     Dosage: 2 MG, BID
     Route: 048
  5. BENIDIPINE HYDROCHLORIDE [Concomitant]
     Route: 048
  6. LENDORMIN [Concomitant]
     Dosage: 0.25 MG, QD
     Route: 048

REACTIONS (2)
  - Interstitial lung disease [Recovering/Resolving]
  - Pancreatitis [Unknown]
